FAERS Safety Report 6417613-8 (Version None)
Quarter: 2009Q4

REPORT INFORMATION
  Report Type: 
  Country: None (occurrence: None)
  Receive Date: 20091028
  Receipt Date: 20091023
  Transmission Date: 20100525
  Serious: Yes (Disabling)
  Sender: FDA-Public Use
  Company Number: FR-ROCHE-664459

PATIENT
  Sex: Female

DRUGS (8)
  1. ROCEPHIN [Suspect]
     Indication: DRUG USE FOR UNKNOWN INDICATION
     Route: 030
     Dates: start: 20090827, end: 20090902
  2. PREVISCAN [Interacting]
     Indication: PHLEBITIS
     Route: 048
     Dates: start: 20060101
  3. ORBENIN CAP [Interacting]
     Indication: DRUG USE FOR UNKNOWN INDICATION
     Route: 048
     Dates: start: 20090903, end: 20090907
  4. NOCTRAN [Concomitant]
     Indication: INSOMNIA
     Route: 048
  5. ALDACTAZINE [Concomitant]
     Dosage: DOSE: 0.25 TABLET DAILY
     Route: 048
  6. NEXIUM [Concomitant]
     Route: 048
  7. SERESTA [Concomitant]
     Route: 048
  8. DURAGESIC-100 [Concomitant]
     Dosage: DOSE: 50 MCG/HOUR DAILY
     Route: 062

REACTIONS (3)
  - ACCIDENTAL OVERDOSE [None]
  - ANAEMIA [None]
  - HAEMARTHROSIS [None]
